FAERS Safety Report 7887165-4 (Version None)
Quarter: 2011Q4

REPORT INFORMATION
  Report Type: 
  Country: None (occurrence: None)
  Receive Date: 20111102
  Receipt Date: 20110715
  Transmission Date: 20120403
  Serious: No
  Sender: FDA-Public Use
  Company Number: US-AMGEN-USASP2011036111

PATIENT
  Sex: Female

DRUGS (2)
  1. ENBREL [Suspect]
     Indication: RHEUMATOID ARTHRITIS
     Dosage: 25 MG, UNK
     Dates: start: 20080711, end: 20110622
  2. METHOTREXATE [Concomitant]
     Dosage: 4 MG, QWK
     Dates: start: 20060101

REACTIONS (3)
  - JOINT SWELLING [None]
  - PAIN IN EXTREMITY [None]
  - ARTHRALGIA [None]
